FAERS Safety Report 18269950 (Version 1)
Quarter: 2020Q3

REPORT INFORMATION
  Report Type: Other
  Country: AR (occurrence: AR)
  Receive Date: 20200916
  Receipt Date: 20200916
  Transmission Date: 20201103
  Serious: Yes (Disabling, Other)
  Sender: FDA-Public Use
  Company Number: AR-ROCHE-2645847

PATIENT
  Age: 74 Year
  Sex: Female

DRUGS (4)
  1. XOLAIR [Suspect]
     Active Substance: OMALIZUMAB
     Dosage: 350 MG, MONTHLY (3 X 350)
     Route: 058
  2. XOLAIR [Suspect]
     Active Substance: OMALIZUMAB
     Indication: ASTHMA
     Route: 058
     Dates: start: 201905
  3. XOLAIR [Suspect]
     Active Substance: OMALIZUMAB
     Dosage: 350 MG, MONTHLY (3 X 350)
     Route: 058
     Dates: start: 20190507, end: 202004
  4. SYMBICORT [Concomitant]
     Active Substance: BUDESONIDE\FORMOTEROL FUMARATE DIHYDRATE
     Indication: PRODUCT USED FOR UNKNOWN INDICATION
     Route: 065

REACTIONS (6)
  - Fatigue [Not Recovered/Not Resolved]
  - Nervousness [Unknown]
  - Anxiety [Not Recovered/Not Resolved]
  - Catarrh [Unknown]
  - Asthmatic crisis [Recovering/Resolving]
  - Dyspnoea [Not Recovered/Not Resolved]

NARRATIVE: CASE EVENT DATE: 20190722
